FAERS Safety Report 24717053 (Version 1)
Quarter: 2024Q4

REPORT INFORMATION
  Report Type: Spontaneous
  Country: CN (occurrence: CN)
  Receive Date: 20241210
  Receipt Date: 20241210
  Transmission Date: 20250115
  Serious: Yes (Other)
  Sender: PFIZER
  Company Number: CN-PFIZER INC-PV202400158833

PATIENT
  Age: 74 Year
  Sex: Male
  Weight: 59 kg

DRUGS (11)
  1. ZYVOX [Suspect]
     Active Substance: LINEZOLID
     Indication: Pneumonia
     Dosage: 0.6 G, 2X/DAY
     Route: 041
     Dates: start: 20241015, end: 20241030
  2. PLAVIX [Suspect]
     Active Substance: CLOPIDOGREL BISULFATE
     Indication: Arteriosclerosis coronary artery
     Dosage: 75 MG, 1X/DAY
     Route: 048
     Dates: start: 20241007, end: 20241026
  3. PLAVIX [Suspect]
     Active Substance: CLOPIDOGREL BISULFATE
     Indication: Antiplatelet therapy
  4. FUROSEMIDE [Concomitant]
     Active Substance: FUROSEMIDE
     Indication: Cardiac failure acute
     Dosage: 20 MG, 2X/DAY
     Route: 042
     Dates: start: 20241001, end: 20241008
  5. FUROSEMIDE [Concomitant]
     Active Substance: FUROSEMIDE
     Indication: Diuretic therapy
     Dosage: 100 MG, 1X/DAY (2ML/H)
     Route: 042
     Dates: start: 20241009, end: 20241108
  6. MEROPENEM [Concomitant]
     Active Substance: MEROPENEM
     Indication: Pneumonia
     Dosage: 1 G, 3X/DAY
     Route: 041
     Dates: start: 20241012, end: 20241108
  7. CRESTOR [Concomitant]
     Active Substance: ROSUVASTATIN CALCIUM
     Indication: Arteriosclerosis coronary artery
     Dosage: 10 MG, 1X/DAY (QN, NASAL FEEDING)
     Dates: start: 20241001, end: 20241108
  8. CRESTOR [Concomitant]
     Active Substance: ROSUVASTATIN CALCIUM
     Indication: Hyperlipidaemia
  9. NITROGLYCERIN [Concomitant]
     Active Substance: NITROGLYCERIN
     Indication: Cardiac failure acute
     Dosage: 30 MG, 1X/DAY
     Route: 042
     Dates: start: 20241009, end: 20241101
  10. NITROGLYCERIN [Concomitant]
     Active Substance: NITROGLYCERIN
     Indication: Vasodilatation
     Dosage: 40 MG, 1X/DAY
     Route: 042
     Dates: start: 20241102
  11. AMLODIPINE BESYLATE [Concomitant]
     Active Substance: AMLODIPINE BESYLATE
     Indication: Blood pressure management
     Dosage: 5 MG (NASAL FEEDING)
     Dates: start: 20241013

REACTIONS (14)
  - Upper gastrointestinal haemorrhage [Recovering/Resolving]
  - Red blood cell count decreased [Recovering/Resolving]
  - Haemoglobin decreased [Recovering/Resolving]
  - Platelet count decreased [Recovering/Resolving]
  - Protein total decreased [Unknown]
  - Blood albumin decreased [Unknown]
  - International normalised ratio increased [Recovering/Resolving]
  - Prothrombin time prolonged [Recovering/Resolving]
  - Fibrin degradation products increased [Recovering/Resolving]
  - Fibrin D dimer increased [Recovering/Resolving]
  - White blood cell count increased [Recovering/Resolving]
  - Granulocyte count increased [Unknown]
  - Frequent bowel movements [Unknown]
  - Faeces discoloured [Unknown]

NARRATIVE: CASE EVENT DATE: 20241025
